FAERS Safety Report 22161349 (Version 1)
Quarter: 2023Q1

REPORT INFORMATION
  Report Type: Spontaneous
  Country: DE (occurrence: DE)
  Receive Date: 20230331
  Receipt Date: 20230331
  Transmission Date: 20230418
  Serious: Yes (Death, Hospitalization, Other)
  Sender: FDA-Public Use
  Company Number: None

PATIENT
  Age: 79 Year
  Sex: Female
  Weight: 62 kg

DRUGS (1)
  1. VENETOCLAX [Suspect]
     Active Substance: VENETOCLAX
     Indication: Chronic lymphocytic leukaemia
     Dosage: 1 X 10ML?FORM STRENGTH WAS10 MILLIGRAMS
     Route: 048
     Dates: start: 20230227, end: 20230306

REACTIONS (10)
  - Arrhythmia [Fatal]
  - Blood pressure increased [Fatal]
  - Asthenia [Fatal]
  - Nasopharyngitis [Unknown]
  - Oxygen saturation abnormal [Fatal]
  - Drug intolerance [Unknown]
  - Dyspnoea [Fatal]
  - Condition aggravated [Fatal]
  - Nausea [Fatal]
  - Decreased appetite [Unknown]

NARRATIVE: CASE EVENT DATE: 20230301
